FAERS Safety Report 22121015 (Version 5)
Quarter: 2023Q2

REPORT INFORMATION
  Report Type: Spontaneous
  Country: US (occurrence: US)
  Receive Date: 20230321
  Receipt Date: 20230503
  Transmission Date: 20230721
  Serious: No
  Sender: FDA-Public Use
  Company Number: US-PFIZER INC-202300112019

PATIENT
  Age: 4 Year
  Sex: Male
  Weight: 14.51 kg

DRUGS (3)
  1. GENOTROPIN [Suspect]
     Active Substance: SOMATROPIN
     Indication: Premature ageing
     Dosage: EVERY NIGHT
  2. GENOTROPIN [Suspect]
     Active Substance: SOMATROPIN
     Indication: Growth disorder
     Dosage: 0.4 MG, DAILY
  3. MONTELUKAST [Concomitant]
     Active Substance: MONTELUKAST SODIUM
     Dosage: UNK

REACTIONS (4)
  - Drug dose omission by device [Recovered/Resolved]
  - Device information output issue [Unknown]
  - Device malfunction [Unknown]
  - Device power source issue [Unknown]

NARRATIVE: CASE EVENT DATE: 20230310
